FAERS Safety Report 15530619 (Version 5)
Quarter: 2019Q3

REPORT INFORMATION
  Report Type: Spontaneous
  Country: CL (occurrence: CL)
  Receive Date: 20181018
  Receipt Date: 20190822
  Transmission Date: 20191004
  Serious: Yes (Hospitalization, Other)
  Sender: FDA-Public Use
  Company Number: CL-BIOMARINAP-CL-2018-120385

PATIENT
  Age: 7 Year
  Sex: Male
  Weight: 26 kg

DRUGS (13)
  1. FERROUS SULFATE. [Concomitant]
     Active Substance: FERROUS SULFATE
     Indication: PRODUCT USED FOR UNKNOWN INDICATION
  2. FOLIC ACID. [Concomitant]
     Active Substance: FOLIC ACID
     Indication: PRODUCT USED FOR UNKNOWN INDICATION
  3. ZINC SULFATE. [Concomitant]
     Active Substance: ZINC SULFATE
     Indication: PRODUCT USED FOR UNKNOWN INDICATION
  4. TOL TOTAL [Concomitant]
     Indication: PRODUCT USED FOR UNKNOWN INDICATION
  5. ALDURAZYME [Suspect]
     Active Substance: LARONIDASE
     Dosage: 100 DOSAGE FORM, QW
     Route: 041
     Dates: start: 20170106
  6. CHLORPHENAMINE [Concomitant]
     Active Substance: CHLORPHENIRAMINE MALEATE
     Indication: PREMEDICATION
  7. PARACETAMOL [Concomitant]
     Active Substance: ACETAMINOPHEN
     Indication: PRODUCT USED FOR UNKNOWN INDICATION
  8. NERVOTON [Concomitant]
     Indication: PRODUCT USED FOR UNKNOWN INDICATION
  9. MALTOFER                           /00383901/ [Concomitant]
     Indication: PRODUCT USED FOR UNKNOWN INDICATION
     Dosage: UNK
  10. ALDURAZYME [Suspect]
     Active Substance: LARONIDASE
     Indication: MUCOPOLYSACCHARIDOSIS I
     Dosage: 5 DOSAGE FORM, QW
     Route: 041
     Dates: start: 20140501, end: 20161223
  11. ASCORBIC ACID W/ERGOCALCIFEROL/RETINOL [Concomitant]
     Indication: PRODUCT USED FOR UNKNOWN INDICATION
  12. VITAMIN D NOS [Concomitant]
     Active Substance: VITAMIN D NOS
     Indication: PRODUCT USED FOR UNKNOWN INDICATION
  13. IMIPRAMINE [Concomitant]
     Active Substance: IMIPRAMINE
     Indication: PRODUCT USED FOR UNKNOWN INDICATION
     Dosage: UNK

REACTIONS (9)
  - Spinal deformity [Recovered/Resolved]
  - Adenoidal disorder [Recovered/Resolved]
  - Spinal column injury [Recovering/Resolving]
  - Blister [Recovered/Resolved]
  - Irritability [Recovered/Resolved]
  - Granuloma [Recovered/Resolved]
  - Skin injury [Recovered/Resolved]
  - Varicella [Recovered/Resolved]
  - Pyrexia [Recovered/Resolved]

NARRATIVE: CASE EVENT DATE: 20161223
